FAERS Safety Report 16246131 (Version 1)
Quarter: 2019Q2

REPORT INFORMATION
  Report Type: Report from Study
  Country: BR (occurrence: BR)
  Receive Date: 20190426
  Receipt Date: 20190426
  Transmission Date: 20190711
  Serious: Yes (Hospitalization)
  Sender: FDA-Public Use
  Company Number: BR-SHIRE-BR201913471

PATIENT

DRUGS (1)
  1. ENDOBULIN [Suspect]
     Active Substance: HUMAN IMMUNOGLOBULIN G
     Indication: PRODUCT USED FOR UNKNOWN INDICATION
     Dosage: UNK
     Route: 042
     Dates: start: 201508

REACTIONS (4)
  - Mental disorder [Unknown]
  - Gastrointestinal pain [Recovered/Resolved]
  - Pyrexia [Unknown]
  - Depression [Unknown]

NARRATIVE: CASE EVENT DATE: 20171013
